FAERS Safety Report 5939549-9 (Version None)
Quarter: 2008Q4

REPORT INFORMATION
  Report Type: 
  Country: None (occurrence: None)
  Receive Date: 20081029
  Receipt Date: 20081013
  Transmission Date: 20090506
  Serious: Yes (Other)
  Sender: FDA-Public Use
  Company Number: 000#8#2008-00197

PATIENT
  Age: 14 Year
  Sex: Male

DRUGS (1)
  1. ISOSORBIDE DINITRATE [Suspect]
     Indication: TILT TABLE TEST
     Dosage: 1.25 MG SUBLINGUAL
     Route: 060
     Dates: start: 20050501, end: 20050501

REACTIONS (6)
  - APNOEA [None]
  - BLOOD PRESSURE DECREASED [None]
  - HEART RATE DECREASED [None]
  - HEART RATE INCREASED [None]
  - LOSS OF CONSCIOUSNESS [None]
  - SINUS ARREST [None]
